FAERS Safety Report 10160883 (Version 2)
Quarter: 2014Q2

REPORT INFORMATION
  Report Type: Spontaneous
  Country: IT (occurrence: IT)
  Receive Date: 20140508
  Receipt Date: 20140521
  Transmission Date: 20141212
  Serious: Yes (Death, Hospitalization)
  Sender: FDA-Public Use
  Company Number: PHHY2014IT053348

PATIENT
  Sex: Male

DRUGS (9)
  1. CARBOPLATIN [Suspect]
     Indication: LUNG CARCINOMA CELL TYPE UNSPECIFIED STAGE IV
     Dosage: 230 MG, CYCLIC
     Route: 042
     Dates: start: 20140123, end: 20140411
  2. ALIMTA [Suspect]
     Indication: LUNG CARCINOMA CELL TYPE UNSPECIFIED STAGE IV
     Dosage: 650 MG, CYCLIC
     Route: 042
     Dates: start: 20140123, end: 20140411
  3. DOBETIN [Concomitant]
  4. CARDIOASPIRIN [Concomitant]
     Dosage: 1 DF, UNK
  5. FOLIC ACID [Concomitant]
  6. AMLODIPINE [Concomitant]
  7. METOPROLOL [Concomitant]
     Dosage: 100 MG, UNK
  8. ATORVASTATIN [Concomitant]
  9. RAMIPRIL [Concomitant]
     Dosage: 2.5 MG, UNK

REACTIONS (5)
  - Anaemia [Fatal]
  - Dyspnoea [Fatal]
  - Febrile neutropenia [Fatal]
  - Thrombocytopenia [Fatal]
  - Confusional state [Fatal]
